FAERS Safety Report 8407567 (Version 4)
Quarter: 2015Q1

REPORT INFORMATION
  Report Type: Spontaneous
  Country: US (occurrence: US)
  Receive Date: 20120215
  Receipt Date: 20150313
  Transmission Date: 20150721
  Serious: Yes (Hospitalization, Other)
  Sender: FDA-Public Use
  Company Number: US-ROCHE-783740

PATIENT
  Age: 21 Year
  Sex: Female
  Weight: 70.82 kg

DRUGS (1)
  1. ACCUTANE [Suspect]
     Active Substance: ISOTRETINOIN
     Indication: ACNE
     Route: 065
     Dates: start: 19990729, end: 200001

REACTIONS (9)
  - Irritable bowel syndrome [Unknown]
  - Cholangitis sclerosing [Unknown]
  - Skin exfoliation [Unknown]
  - Inflammatory bowel disease [Unknown]
  - Crohn^s disease [Unknown]
  - Stress [Unknown]
  - Lip dry [Unknown]
  - Colitis ulcerative [Unknown]
  - Road traffic accident [Unknown]

NARRATIVE: CASE EVENT DATE: 19990830
